FAERS Safety Report 5177027-8 (Version None)
Quarter: 2006Q4

REPORT INFORMATION
  Report Type: 
  Country: None (occurrence: None)
  Receive Date: 20061218
  Receipt Date: 20060822
  Transmission Date: 20070319
  Serious: Yes (Other)
  Sender: FDA-Public Use
  Company Number: VN-GLAXOSMITHKLINE-B0435739A

PATIENT
  Age: 30 Year
  Sex: Male

DRUGS (7)
  1. BLINDED TRIAL MEDICATION [Suspect]
     Indication: HIV INFECTION
     Route: 048
     Dates: start: 20060615
  2. RIFAMPICIN [Suspect]
     Dates: end: 20060630
  3. ISONIAZID [Suspect]
     Dates: end: 20060630
  4. PYRAZINAMIDE [Suspect]
     Dates: end: 20060630
  5. ETHAMBUTOL HYDROCHLORIDE [Suspect]
  6. DEXAMETHASONE [Concomitant]
  7. SILYBEAN [Concomitant]

REACTIONS (1)
  - HEPATITIS [None]
